FAERS Safety Report 4731965-6 (Version None)
Quarter: 2005Q3

REPORT INFORMATION
  Report Type: 
  Country: None (occurrence: None)
  Receive Date: 20050725
  Receipt Date: 20041005
  Transmission Date: 20060218
  Serious: Yes (Other)
  Sender: FDA-Public Use
  Company Number: WAES 0410USA00668

PATIENT
  Age: 72 Year
  Sex: Female

DRUGS (4)
  1. VIOXX [Suspect]
     Indication: OSTEOARTHRITIS
     Dosage: 12.5 MG/DAILY/PO; 25 MG/DAILY/PO
     Route: 048
     Dates: start: 19991001, end: 20031001
  2. VIOXX [Suspect]
     Indication: OSTEOARTHRITIS
     Dosage: 12.5 MG/DAILY/PO; 25 MG/DAILY/PO
     Route: 048
     Dates: start: 20031001, end: 20040201
  3. PRILOSEC [Concomitant]
  4. SINGULAIR [Concomitant]

REACTIONS (4)
  - ANAEMIA [None]
  - BLOOD CREATINE INCREASED [None]
  - BLOOD UREA INCREASED [None]
  - RENAL IMPAIRMENT [None]
